FAERS Safety Report 6793751-5 (Version None)
Quarter: 2010Q2

REPORT INFORMATION
  Report Type: 
  Country: None (occurrence: None)
  Receive Date: 20100624
  Receipt Date: 20090226
  Transmission Date: 20101027
  Serious: No
  Sender: FDA-Public Use
  Company Number: US-PFIZER INC-2009150902

PATIENT
  Sex: Female
  Weight: 77.098 kg

DRUGS (3)
  1. XALATAN [Suspect]
     Indication: PROPHYLAXIS
     Dates: start: 20081203
  2. TIMOLOL MALEATE [Concomitant]
  3. REFRESH TEARS [Concomitant]
     Dosage: UNK

REACTIONS (2)
  - ALOPECIA [None]
  - EYE PRURITUS [None]
